FAERS Safety Report 10584613 (Version 3)
Quarter: 2015Q1

REPORT INFORMATION
  Report Type: Spontaneous
  Country: FR (occurrence: None)
  Receive Date: 20141112
  Receipt Date: 20150210
  Transmission Date: 20150720
  Serious: Yes (Death)
  Sender: FDA-Public Use
  Company Number: FRA-CLT-2009019

PATIENT
  Age: 43 Day
  Sex: Female

DRUGS (7)
  1. TAZOCILLINE [Concomitant]
     Active Substance: PIPERACILLIN SODIUM\TAZOBACTAM SODIUM
  2. CARGLUMIC ACID [Suspect]
     Active Substance: CARGLUMIC ACID
     Indication: HYPERAMMONAEMIA
     Route: 048
     Dates: start: 20080930, end: 20080930
  3. SODIUM BENZOATE [Concomitant]
     Active Substance: SODIUM BENZOATE
  4. VANCOMYCIN [Concomitant]
     Active Substance: VANCOMYCIN
  5. PIPERACILLIN SODIUM;TAZOBACTAM [Concomitant]
  6. GENTAMICIN. [Concomitant]
     Active Substance: GENTAMICIN
  7. L-CARNITINE [Concomitant]
     Active Substance: CARNITINE

REACTIONS (4)
  - Epilepsy [None]
  - Respiratory arrest [None]
  - Nervous system disorder [None]
  - Hyperammonaemia [None]

NARRATIVE: CASE EVENT DATE: 20081016
